FAERS Safety Report 10336192 (Version 1)
Quarter: 2014Q3

REPORT INFORMATION
  Report Type: Spontaneous
  Country: JP (occurrence: JP)
  Receive Date: 20140723
  Receipt Date: 20140723
  Transmission Date: 20150326
  Serious: No
  Sender: FDA-Public Use
  Company Number: PHHY2012JP132778

PATIENT
  Age: 45 Year
  Sex: Female

DRUGS (4)
  1. DASATINIB [Concomitant]
     Active Substance: DASATINIB
     Dosage: 100 MG, UNK
  2. GLIVEC [Suspect]
     Active Substance: IMATINIB MESYLATE
     Indication: CHRONIC MYELOID LEUKAEMIA
  3. DASATINIB [Concomitant]
     Active Substance: DASATINIB
     Dosage: UNK UKN, UNK
  4. TASIGNA [Suspect]
     Active Substance: NILOTINIB
     Indication: CHRONIC MYELOID LEUKAEMIA
     Dosage: 400 MG, DAILY
     Dates: start: 200910

REACTIONS (4)
  - Blood glucose increased [Unknown]
  - Hypoglycaemia [Unknown]
  - Spondylolisthesis [Unknown]
  - Electrocardiogram QT prolonged [Unknown]

NARRATIVE: CASE EVENT DATE: 201105
